FAERS Safety Report 5925015-3 (Version None)
Quarter: 2008Q4

REPORT INFORMATION
  Report Type: 
  Country: None (occurrence: None)
  Receive Date: 20081021
  Receipt Date: 20081016
  Transmission Date: 20090506
  Serious: Yes (Hospitalization)
  Sender: FDA-Public Use
  Company Number: FR-WYE-G02370508

PATIENT
  Sex: Female
  Weight: 19.4 kg

DRUGS (4)
  1. ADVIL [Suspect]
     Indication: PYREXIA
     Dosage: UNKNOWN
     Route: 048
     Dates: start: 20080917, end: 20080921
  2. PIVALONE [Concomitant]
     Dosage: UNKNOWN
     Dates: start: 20080919, end: 20080920
  3. DOLIPRANE [Concomitant]
     Indication: PYREXIA
     Route: 048
     Dates: start: 20080916, end: 20080916
  4. DOLIPRANE [Concomitant]
     Dosage: UNKNOWN
     Route: 048
     Dates: start: 20080917

REACTIONS (7)
  - ABDOMINAL PAIN [None]
  - CONJUNCTIVITIS [None]
  - DRUG INEFFECTIVE [None]
  - ERYTHEMA [None]
  - RASH GENERALISED [None]
  - RASH PAPULAR [None]
  - TONSILLITIS [None]
